FAERS Safety Report 6162048-9 (Version None)
Quarter: 2009Q2

REPORT INFORMATION
  Report Type: 
  Country: None (occurrence: None)
  Receive Date: 20090417
  Receipt Date: 20090417
  Transmission Date: 20091009
  Serious: No
  Sender: FDA-Public Use
  Company Number: None

PATIENT
  Sex: Female

DRUGS (2)
  1. ESTRADIOL AND NORETHINDRONE ACETATE [Suspect]
     Indication: MENOPAUSAL SYMPTOMS
     Dosage: 1 MG QD ORALLY
     Route: 048
  2. NORETHINDRONE 0.5 MG PHARMACEUTICS INTERNATIONAL [Suspect]
     Indication: MENOPAUSAL SYMPTOMS
     Dosage: 0.5 MG QD ORALLY
     Route: 048

REACTIONS (2)
  - BREAST TENDERNESS [None]
  - PRODUCT SUBSTITUTION ISSUE [None]
